FAERS Safety Report 18531541 (Version 1)
Quarter: 2020Q4

REPORT INFORMATION
  Report Type: Spontaneous
  Country: US (occurrence: US)
  Receive Date: 20201122
  Receipt Date: 20201122
  Transmission Date: 20210114
  Serious: Yes (Disabling)
  Sender: FDA-Public Use
  Company Number: US-BAUSCH-BL-2020-032683

PATIENT
  Age: 43 Year
  Sex: Female

DRUGS (4)
  1. HUMIRA [Suspect]
     Active Substance: ADALIMUMAB
     Dosage: 80 MG/ 0.8 ML (DAY15 : 80 MG, ONCE)
     Route: 058
     Dates: start: 20200915, end: 202009
  2. HUMIRA [Suspect]
     Active Substance: ADALIMUMAB
     Dosage: 40 MG/ 0.4 ML
     Route: 058
     Dates: start: 2020
  3. APRISO [Suspect]
     Active Substance: MESALAMINE
     Indication: PRODUCT USED FOR UNKNOWN INDICATION
     Route: 065
  4. HUMIRA [Suspect]
     Active Substance: ADALIMUMAB
     Indication: COLITIS ULCERATIVE
     Dosage: 80 MG/ 0.8 ML ((DAY1: 160 MG, 0-2, ONCE)
     Route: 058
     Dates: start: 20200901, end: 202009

REACTIONS (8)
  - Diarrhoea [Unknown]
  - Constipation [Unknown]
  - Sinusitis [Unknown]
  - Frequent bowel movements [Unknown]
  - Paraesthesia [Recovered/Resolved]
  - Pollakiuria [Unknown]
  - Headache [Unknown]
  - Micturition urgency [Unknown]

NARRATIVE: CASE EVENT DATE: 2020
